FAERS Safety Report 26110308 (Version 1)
Quarter: 2025Q4

REPORT INFORMATION
  Report Type: Spontaneous
  Country: GB (occurrence: GB)
  Receive Date: 20251202
  Receipt Date: 20251202
  Transmission Date: 20260117
  Serious: Yes (Other)
  Sender: SANDOZ
  Company Number: None

PATIENT
  Age: 32 Year
  Sex: Female
  Weight: 67 kg

DRUGS (1)
  1. CLARITHROMYCIN [Suspect]
     Active Substance: CLARITHROMYCIN
     Indication: Pharyngitis
     Dosage: 500 MG, ONCE EVERY MORNING
     Route: 065
     Dates: start: 20240829, end: 20240902

REACTIONS (2)
  - Heavy menstrual bleeding [Not Recovered/Not Resolved]
  - Medication error [Unknown]

NARRATIVE: CASE EVENT DATE: 20241028
